FAERS Safety Report 16527945 (Version 1)
Quarter: 2019Q3

REPORT INFORMATION
  Report Type: Spontaneous
  Country: JP (occurrence: JP)
  Receive Date: 20190703
  Receipt Date: 20190703
  Transmission Date: 20191004
  Serious: Yes (Hospitalization)
  Sender: FDA-Public Use
  Company Number: JP-ELI_LILLY_AND_COMPANY-JP201906012949

PATIENT
  Age: 53 Year
  Sex: Female

DRUGS (8)
  1. LEVOMEPROMAZINE MALEATE [Concomitant]
     Active Substance: LEVOMEPROMAZINE MALEATE
     Dosage: UNK
     Route: 048
  2. AMLODIN [Suspect]
     Active Substance: AMLODIPINE BESYLATE
     Indication: PRODUCT USED FOR UNKNOWN INDICATION
     Dosage: UNK
     Route: 065
  3. ASTRAGALUS SPP. ROOT;ATRACTYLODES LANCEA RHIZ [Suspect]
     Active Substance: HERBALS
     Indication: PRODUCT USED FOR UNKNOWN INDICATION
     Dosage: UNK
     Route: 065
  4. STRATTERA [Suspect]
     Active Substance: ATOMOXETINE HYDROCHLORIDE
     Indication: ATTENTION DEFICIT/HYPERACTIVITY DISORDER
     Dosage: UNK
     Route: 048
  5. DULOXETINE HYDROCHLORIDE. [Suspect]
     Active Substance: DULOXETINE HYDROCHLORIDE
     Indication: BIPOLAR DISORDER
     Dosage: UNK
  6. DULOXETINE HYDROCHLORIDE. [Suspect]
     Active Substance: DULOXETINE HYDROCHLORIDE
     Dosage: 20 MG, EACH EVENING
     Route: 048
     Dates: start: 201905
  7. MYSLEE [Concomitant]
     Active Substance: ZOLPIDEM TARTRATE
     Dosage: UNK
     Route: 048
  8. DULOXETINE HYDROCHLORIDE. [Suspect]
     Active Substance: DULOXETINE HYDROCHLORIDE
     Dosage: 40 MG, EACH EVENING
     Route: 048
     Dates: end: 201905

REACTIONS (16)
  - Menstruation delayed [Unknown]
  - Product dose omission [Unknown]
  - Asthenia [Unknown]
  - Drug ineffective [Unknown]
  - Oedema peripheral [Unknown]
  - Renal function test abnormal [Unknown]
  - Off label use [Recovered/Resolved]
  - Polyuria [Unknown]
  - Feeling abnormal [Unknown]
  - Mobility decreased [Unknown]
  - Hypertension [Unknown]
  - Swelling face [Unknown]
  - Urine output decreased [Recovered/Resolved]
  - Chest discomfort [Unknown]
  - Eyelid disorder [Unknown]
  - Weight increased [Recovered/Resolved]

NARRATIVE: CASE EVENT DATE: 201810
